FAERS Safety Report 7113176-2 (Version None)
Quarter: 2010Q4

REPORT INFORMATION
  Report Type: 
  Country: None (occurrence: None)
  Receive Date: 20101119
  Receipt Date: 20091211
  Transmission Date: 20110411
  Serious: No
  Sender: FDA-Public Use
  Company Number: A0803305A

PATIENT
  Sex: Male

DRUGS (1)
  1. WELLBUTRIN SR [Suspect]
     Dosage: 275MG UNKNOWN
     Route: 048

REACTIONS (4)
  - ARTHRALGIA [None]
  - JOINT STIFFNESS [None]
  - MUSCULOSKELETAL DISCOMFORT [None]
  - PAIN IN EXTREMITY [None]
